FAERS Safety Report 21375263 (Version 1)
Quarter: 2022Q3

REPORT INFORMATION
  Report Type: Spontaneous
  Country: CN (occurrence: CN)
  Receive Date: 20220926
  Receipt Date: 20220926
  Transmission Date: 20221027
  Serious: Yes (Other)
  Sender: FDA-Public Use
  Company Number: CN-MLMSERVICE-20220909-3786205-1

PATIENT
  Age: 6 Decade
  Sex: Male

DRUGS (10)
  1. IRINOTECAN [Suspect]
     Active Substance: IRINOTECAN
     Indication: Pancreatic carcinoma metastatic
     Dosage: ON DAY 1, EVERY 2 WEEKS
     Dates: start: 20190328
  2. FLUOROURACIL [Suspect]
     Active Substance: FLUOROURACIL
     Indication: Pancreatic carcinoma metastatic
     Dosage: CONTINUOUS INFUSION FOR 46 HOURS EVERY 2 WEEKS
     Dates: start: 20190328
  3. OXALIPLATIN [Suspect]
     Active Substance: OXALIPLATIN
     Indication: Pancreatic carcinoma metastatic
     Dosage: ON DAY 1, EVERY 2 WEEKS
     Dates: start: 20190328
  4. TORIPALIMAB [Suspect]
     Active Substance: TORIPALIMAB
     Indication: Pancreatic carcinoma metastatic
     Dosage: DAY 1 EVERY 3 WEEKS
     Dates: start: 20190328
  5. LEUCOVORIN [Suspect]
     Active Substance: LEUCOVORIN
     Indication: Pancreatic carcinoma metastatic
     Dosage: ON DAY 1, EVERY 2 WEEKS
     Dates: start: 20190328
  6. IRINOTECAN [Suspect]
     Active Substance: IRINOTECAN
     Indication: Metastases to lymph nodes
     Dosage: ON DAY 1, EVERY 2 WEEKS
     Dates: start: 20190328
  7. OXALIPLATIN [Suspect]
     Active Substance: OXALIPLATIN
     Indication: Metastases to lung
     Dosage: ON DAY 1, EVERY 2 WEEKS
     Dates: start: 20190328
  8. FLUOROURACIL [Suspect]
     Active Substance: FLUOROURACIL
     Indication: Pancreatic carcinoma metastatic
     Dosage: CONTINUOUS INFUSION FOR 46 HOURS EVERY 2 WEEKS
     Dates: start: 20190328
  9. TORIPALIMAB [Suspect]
     Active Substance: TORIPALIMAB
     Indication: Metastases to lung
     Dosage: DAY 1 EVERY 3 WEEKS
     Dates: start: 20190328
  10. LEUCOVORIN [Suspect]
     Active Substance: LEUCOVORIN
     Indication: Pancreatic carcinoma metastatic
     Dosage: ON DAY 1, EVERY 2 WEEKS
     Dates: start: 20190328

REACTIONS (3)
  - Neurotoxicity [Recovered/Resolved]
  - Transaminases increased [Recovered/Resolved]
  - Myelosuppression [Recovered/Resolved]
